FAERS Safety Report 8439601-2 (Version None)
Quarter: 2012Q2

REPORT INFORMATION
  Report Type: 
  Country: None (occurrence: None)
  Receive Date: 20120323
  Receipt Date: 20110803
  Transmission Date: 20120825
  Serious: Yes (Hospitalization, Other)
  Sender: FDA-Public Use
  Company Number: 163-21880-11053627

PATIENT
  Age: 61 Year
  Sex: Female

DRUGS (2)
  1. REVLIMID [Suspect]
     Indication: MULTIPLE MYELOMA
     Dosage: 25 MG, 1 IN 1 D, PO, 25 MG, X14, PO
     Route: 048
     Dates: start: 20090401
  2. REVLIMID [Suspect]
     Indication: MULTIPLE MYELOMA
     Dosage: 25 MG, 1 IN 1 D, PO, 25 MG, X14, PO
     Route: 048
     Dates: start: 20110401

REACTIONS (4)
  - ANAEMIA [None]
  - PANCYTOPENIA [None]
  - FATIGUE [None]
  - BRONCHOPULMONARY ASPERGILLOSIS [None]
